FAERS Safety Report 4431378-0 (Version None)
Quarter: 2004Q3

REPORT INFORMATION
  Report Type: 
  Country: None (occurrence: None)
  Receive Date: 20040820
  Receipt Date: 20040820
  Transmission Date: 20050211
  Serious: Yes (Hospitalization)
  Sender: FDA-Public Use
  Company Number: None

PATIENT
  Age: 56 Year
  Sex: Male
  Weight: 78 kg

DRUGS (6)
  1. NITROGLYCERIN PATCH 0.4 MG/H [Suspect]
     Indication: HYPERTENSION
     Dosage: 0.4 MG /HR TOPICAL
     Route: 061
     Dates: start: 20040204, end: 20040515
  2. FELODIPINE [Suspect]
     Indication: HYPERTENSION
     Dosage: 5 MG QD ORAL
     Route: 048
     Dates: start: 20040412, end: 20040515
  3. HYDROCHLOROTHIAZIDE [Concomitant]
  4. CLEAN STUDY-CETP INHIBITOR/ATORVASTATIN/ PLACEBO- [Concomitant]
  5. OMEPRAZOLE [Concomitant]
  6. LISINOPRIL [Concomitant]

REACTIONS (5)
  - ANGIOPATHY [None]
  - CIRCULATORY COLLAPSE [None]
  - DEHYDRATION [None]
  - DIZZINESS [None]
  - SYNCOPE [None]
